FAERS Safety Report 4513787-4 (Version None)
Quarter: 2004Q4

REPORT INFORMATION
  Report Type: 
  Country: None (occurrence: None)
  Receive Date: 20041130
  Receipt Date: 20041025
  Transmission Date: 20050328
  Serious: Yes (Other)
  Sender: FDA-Public Use
  Company Number: US-GLAXOSMITHKLINE-A0531413A

PATIENT
  Age: 44 Year
  Sex: Female

DRUGS (5)
  1. WELLBUTRIN XL [Suspect]
     Indication: DRUG USE FOR UNKNOWN INDICATION
     Dosage: 150MG PER DAY
     Route: 048
     Dates: start: 20040719, end: 20041019
  2. LAMICTAL [Concomitant]
     Route: 048
  3. LORAZEPAM [Concomitant]
     Route: 065
  4. KEPPRA [Concomitant]
     Route: 065
  5. UNKNOWN MEDICATION [Concomitant]

REACTIONS (1)
  - CONVULSION [None]
